FAERS Safety Report 6634627-3 (Version None)
Quarter: 2010Q1

REPORT INFORMATION
  Report Type: 
  Country: None (occurrence: None)
  Receive Date: 20100315
  Receipt Date: 20100308
  Transmission Date: 20100710
  Serious: Yes (Hospitalization)
  Sender: FDA-Public Use
  Company Number: A0849863A

PATIENT
  Age: 53 Year
  Sex: Male
  Weight: 113.2 kg

DRUGS (1)
  1. AVANDIA [Suspect]
     Route: 048
     Dates: end: 20020101

REACTIONS (2)
  - MYOCARDIAL INFARCTION [None]
  - TRANSIENT ISCHAEMIC ATTACK [None]
